FAERS Safety Report 12746191 (Version 4)
Quarter: 2016Q4

REPORT INFORMATION
  Report Type: Report from Study
  Country: RU (occurrence: RU)
  Receive Date: 20160915
  Receipt Date: 20161115
  Transmission Date: 20170207
  Serious: Yes (Hospitalization)
  Sender: FDA-Public Use
  Company Number: RU-PFIZER INC-2016421813

PATIENT
  Age: 62 Year
  Sex: Male
  Weight: 71.3 kg

DRUGS (5)
  1. FOLIC ACID. [Concomitant]
     Active Substance: FOLIC ACID
     Indication: PROPHYLAXIS
     Dosage: 10 MG, OW
     Route: 048
     Dates: start: 20141114, end: 20160906
  2. TOFACITINIB CITRATE [Suspect]
     Active Substance: TOFACITINIB CITRATE
     Indication: PSORIATIC ARTHROPATHY
     Dosage: 10 MG, 2X/DAY
     Route: 048
     Dates: start: 20150707, end: 20160906
  3. METHOTREXATE. [Concomitant]
     Active Substance: METHOTREXATE
     Indication: PSORIATIC ARTHROPATHY
     Dosage: 20 MG, WEEKLY
     Route: 030
     Dates: start: 20141114, end: 20160906
  4. PRESTARIUM /00790701/ [Concomitant]
     Active Substance: PERINDOPRIL
     Indication: ANGINA PECTORIS
     Dosage: 2.5 MG, OD
     Route: 048
     Dates: start: 20150907
  5. ACETYLSALICYLIC ACID [Concomitant]
     Active Substance: ASPIRIN
     Indication: ANGINA PECTORIS
     Dosage: 100 MG, QD
     Dates: start: 2009

REACTIONS (4)
  - Otitis media acute [Recovered/Resolved with Sequelae]
  - Osteochondrosis [Recovered/Resolved with Sequelae]
  - Condition aggravated [Recovered/Resolved with Sequelae]
  - Intervertebral disc protrusion [Recovered/Resolved with Sequelae]

NARRATIVE: CASE EVENT DATE: 20160803
